FAERS Safety Report 9859932 (Version 1)
Quarter: 2014Q1

REPORT INFORMATION
  Report Type: Report from Study
  Country: US (occurrence: US)
  Receive Date: 20140131
  Receipt Date: 20140131
  Transmission Date: 20141002
  Serious: Yes (Other)
  Sender: FDA-Public Use
  Company Number: US-BAXTER-2014BAX003579

PATIENT
  Age: 7 Year
  Sex: Male
  Weight: 31.82 kg

DRUGS (5)
  1. GAMMAGARD LIQUID [Suspect]
     Indication: PAEDIATRIC AUTOIMMUNE NEUROPSYCHIATRIC DISORDERS ASSOCIATED WITH STREPTOCOCCAL INFECTION
     Dosage: 2 GM/KG
     Route: 042
     Dates: start: 201308
  2. GAMMAGARD LIQUID [Suspect]
     Indication: NEUROPSYCHIATRIC SYNDROME
     Dates: start: 201310
  3. GAMMAGARD LIQUID [Suspect]
     Indication: OFF LABEL USE
     Dates: start: 201312
  4. GAMMAGARD LIQUID [Suspect]
     Dates: start: 201401
  5. BIAXIN [Concomitant]
     Indication: INFECTION PROPHYLAXIS
     Dates: start: 201309

REACTIONS (4)
  - Paediatric autoimmune neuropsychiatric disorders associated with streptococcal infection [Unknown]
  - Neuropsychiatric syndrome [Unknown]
  - Disease recurrence [Unknown]
  - Off label use [Unknown]
